FAERS Safety Report 19590132 (Version 1)
Quarter: 2021Q3

REPORT INFORMATION
  Report Type: Spontaneous
  Country: US (occurrence: US)
  Receive Date: 20210721
  Receipt Date: 20210721
  Transmission Date: 20211014
  Serious: No
  Sender: FDA-Public Use
  Company Number: US-SA-2021SA234486

PATIENT
  Sex: Female

DRUGS (3)
  1. CERDELGA [Suspect]
     Active Substance: ELIGLUSTAT
     Indication: GAUCHER^S DISEASE
     Route: 048
     Dates: start: 20200821
  2. MUCINEX [Concomitant]
     Active Substance: GUAIFENESIN
  3. CODEINE [Concomitant]
     Active Substance: CODEINE

REACTIONS (1)
  - Nasopharyngitis [Unknown]
